FAERS Safety Report 8910764 (Version 2)
Quarter: 2013Q1

REPORT INFORMATION
  Report Type: Spontaneous
  Country: GB (occurrence: None)
  Receive Date: 20121113
  Receipt Date: 20121113
  Transmission Date: 20140127
  Serious: Yes (Other)
  Sender: FDA-Public Use
  Company Number: GB12415580

PATIENT
  Sex: 0

DRUGS (4)
  1. METRONIDAZOLE (METRONIDAZOLE) [Suspect]
     Indication: ABDOMINAL ABSCESS
  2. AFINITOR [Suspect]
     Indication: PRODUCT USED FOR UNKNOWN INDICATION
  3. DOXYCYCLINE (DOXYCYCLINE) [Concomitant]
  4. CEFUROXIME (CEFUROXIME) [Concomitant]

REACTIONS (2)
  - Abdominal abscess [None]
  - Drug interaction [None]
